FAERS Safety Report 16970454 (Version 3)
Quarter: 2022Q4

REPORT INFORMATION
  Report Type: Spontaneous
  Country: US (occurrence: US)
  Receive Date: 20191029
  Receipt Date: 20221228
  Transmission Date: 20230113
  Serious: No
  Sender: FDA-Public Use
  Company Number: US-PFIZER INC-2019464867

PATIENT
  Age: 75 Year
  Sex: Female
  Weight: 84 kg

DRUGS (5)
  1. TIKOSYN [Suspect]
     Active Substance: DOFETILIDE
     Indication: Atrial fibrillation
     Dosage: 0.5 MG, 2X/DAY
     Route: 048
     Dates: start: 200811
  2. WARFARIN [Concomitant]
     Active Substance: WARFARIN
     Indication: Thrombosis prophylaxis
     Dosage: UNK (DOSE CHANGES BASED ON BLOOD TEST. SOMETIMES SHE HALVES IT. 2 WHOLE AND 5 HALVES PER WEEK)
  3. ATENOLOL [Concomitant]
     Active Substance: ATENOLOL
     Indication: Cardiac disorder
     Dosage: UNK, 2X/DAY
  4. ATENOLOL [Concomitant]
     Active Substance: ATENOLOL
     Dosage: 25 MG, 1X/DAY
     Route: 048
  5. LEVOTHYROXINE [Concomitant]
     Active Substance: LEVOTHYROXINE
     Indication: Hypothyroidism
     Dosage: 50 UG, 1X/DAY
     Route: 048

REACTIONS (6)
  - Therapeutic product effect incomplete [Unknown]
  - Cardiac disorder [Unknown]
  - Bronchitis [Not Recovered/Not Resolved]
  - Hypoacusis [Unknown]
  - Chest pain [Unknown]
  - Temperature intolerance [Unknown]

NARRATIVE: CASE EVENT DATE: 20180601
